FAERS Safety Report 9556867 (Version 1)
Quarter: 2013Q3

REPORT INFORMATION
  Report Type: Spontaneous
  Country: BR (occurrence: BR)
  Receive Date: 20130926
  Receipt Date: 20130926
  Transmission Date: 20140515
  Serious: Yes (Hospitalization)
  Sender: FDA-Public Use
  Company Number: BR-SANOFI-AVENTIS-2013SA093713

PATIENT
  Sex: Male
  Weight: 79 kg

DRUGS (8)
  1. LANTUS [Suspect]
     Indication: TYPE 2 DIABETES MELLITUS
     Route: 065
     Dates: start: 201304
  2. LANTUS [Suspect]
     Indication: TYPE 2 DIABETES MELLITUS
     Route: 058
     Dates: start: 2013
  3. GLIFAGE [Concomitant]
     Indication: TYPE 2 DIABETES MELLITUS
     Route: 048
  4. VIVACOR [Concomitant]
     Indication: BLOOD CHOLESTEROL
     Route: 048
  5. ATENOLOL [Concomitant]
     Indication: ANTICOAGULANT THERAPY
     Route: 048
  6. ASPIRIN [Concomitant]
     Indication: ANTICOAGULANT THERAPY
     Route: 048
  7. CLIKSTAR [Concomitant]
     Indication: DEVICE THERAPY
  8. SOLOSTAR [Concomitant]
     Indication: DEVICE THERAPY
     Dates: start: 201304

REACTIONS (3)
  - Arterial occlusive disease [Recovering/Resolving]
  - Dyspnoea [Recovering/Resolving]
  - Burning sensation [Recovering/Resolving]
